FAERS Safety Report 8340487 (Version 2)
Quarter: 2015Q1

REPORT INFORMATION
  Report Type: Report from Study
  Country: US (occurrence: US)
  Receive Date: 20120117
  Receipt Date: 20150210
  Transmission Date: 20150721
  Serious: Yes (Death)
  Sender: FDA-Public Use
  Company Number: US-ROCHE-1029331

PATIENT
  Sex: Male
  Weight: 59 kg

DRUGS (17)
  1. SPIRIVA [Concomitant]
     Active Substance: TIOTROPIUM BROMIDE MONOHYDRATE
     Dosage: INHALE 1 CAPSULE
     Route: 065
  2. PROAIR (ARGENTINA) [Concomitant]
  3. PATADAY [Concomitant]
     Active Substance: OLOPATADINE HYDROCHLORIDE
     Dosage: INSTILL 1 DROP INTO AFFECTED EYE
     Route: 047
     Dates: start: 20090513
  4. VERAMYST [Concomitant]
     Active Substance: FLUTICASONE FUROATE
     Dosage: INHALE 2 SPRAYS IN EACH NOSTRIL
     Route: 045
  5. ATOPICLAIR [Concomitant]
     Dosage: APPLY TO AFFECTED AREA
     Route: 061
     Dates: start: 20090513
  6. CETRIZINE [Concomitant]
     Active Substance: CETIRIZINE HYDROCHLORIDE
     Route: 048
  7. SINGULAIR [Concomitant]
     Active Substance: MONTELUKAST SODIUM
     Route: 048
  8. ADVAIR HFA [Concomitant]
     Active Substance: FLUTICASONE PROPIONATE\SALMETEROL XINAFOATE
     Dosage: INHLE PUFF
     Route: 065
  9. NYSTATIN. [Concomitant]
     Active Substance: NYSTATIN
     Dosage: 100000 UNIT/ML
     Route: 048
     Dates: start: 20090527
  10. XOLAIR [Suspect]
     Active Substance: OMALIZUMAB
     Indication: ASTHMA
     Route: 058
     Dates: start: 200905
  11. XOLAIR [Suspect]
     Active Substance: OMALIZUMAB
     Indication: RHINITIS ALLERGIC
  12. CARVEDILOL. [Suspect]
     Active Substance: CARVEDILOL
     Indication: PRODUCT USED FOR UNKNOWN INDICATION
     Route: 048
  13. PREDNISONE. [Suspect]
     Active Substance: PREDNISONE
     Indication: PRODUCT USED FOR UNKNOWN INDICATION
     Route: 065
  14. ALBUTEROL. [Concomitant]
     Active Substance: ALBUTEROL
  15. ELOCON [Concomitant]
     Active Substance: MOMETASONE FUROATE
     Dosage: APPLY TO AFFECTED AREA
     Route: 061
     Dates: start: 20090619
  16. XYZAL [Concomitant]
     Active Substance: LEVOCETIRIZINE DIHYDROCHLORIDE
     Route: 048
     Dates: start: 20090218
  17. ASPIRIN. [Concomitant]
     Active Substance: ASPIRIN
     Route: 048

REACTIONS (9)
  - Death [Fatal]
  - Asthma [Unknown]
  - Swelling [Unknown]
  - Nasal congestion [Unknown]
  - Pruritus [Unknown]
  - Psychomotor hyperactivity [Unknown]
  - Upper respiratory tract infection [Unknown]
  - Rash [Unknown]
  - Oedema [Unknown]
